FAERS Safety Report 5487090-2 (Version None)
Quarter: 2007Q4

REPORT INFORMATION
  Report Type: 
  Country: None (occurrence: None)
  Receive Date: 20071016
  Receipt Date: 20071003
  Transmission Date: 20080405
  Serious: Yes (Other)
  Sender: FDA-Public Use
  Company Number: US-SHR-US-2007-029284

PATIENT
  Age: 39 Year
  Sex: Female
  Weight: 68.027 kg

DRUGS (7)
  1. BETASERON [Suspect]
     Indication: RELAPSING-REMITTING MULTIPLE SCLEROSIS
     Dosage: 8 MIU, EVERY 2D
     Route: 058
     Dates: start: 20030901, end: 20060901
  2. BETASERON [Suspect]
     Dosage: 4 MIU, EVERY 2D
     Route: 058
     Dates: start: 20060921
  3. BETASERON [Suspect]
     Dosage: 6 MIU, EVERY 2D
     Route: 058
  4. BETASERON [Suspect]
     Route: 058
     Dates: end: 20070924
  5. SYNTHROID [Concomitant]
  6. PREVACID [Concomitant]
     Dosage: 30 MG, 1X/DAY
  7. IBUPROFEN [Concomitant]
     Dosage: 400 UNK, AS REQ'D

REACTIONS (5)
  - INJECTION SITE REACTION [None]
  - MULTIPLE SCLEROSIS [None]
  - RED BLOOD CELL COUNT DECREASED [None]
  - THYROID CANCER [None]
  - WHITE BLOOD CELL COUNT DECREASED [None]
